FAERS Safety Report 9185300 (Version 2)
Quarter: 2014Q1

REPORT INFORMATION
  Report Type: Spontaneous
  Country: US (occurrence: US)
  Receive Date: 20121101
  Receipt Date: 20140113
  Transmission Date: 20141002
  Serious: Yes (Other)
  Sender: FDA-Public Use
  Company Number: US-PFIZER INC-2012268992

PATIENT
  Age: 66 Year
  Sex: Female
  Weight: 61.22 kg

DRUGS (8)
  1. LYRICA [Suspect]
     Indication: FIBROMYALGIA
     Dosage: 75 MG, 2X/DAY
     Dates: start: 2011
  2. LYRICA [Suspect]
     Dosage: 75 MG, 1X/DAY
  3. PRISTIQ [Concomitant]
     Indication: DEPRESSION
     Dosage: 100 MG, 1X/DAY
  4. ZALEPLON [Concomitant]
     Indication: SLEEP DISORDER
     Dosage: 10 MG, UNK
  5. TRAZODONE [Concomitant]
     Indication: DEPRESSION
     Dosage: 150 MG, UNK
  6. BUTRANS [Concomitant]
     Dosage: 5 MG, WEEKLY
  7. CYCLOBENZAPRINE [Concomitant]
     Indication: MUSCLE RELAXANT THERAPY
     Dosage: UNK
  8. ACIPHEX [Concomitant]
     Indication: GASTROOESOPHAGEAL REFLUX DISEASE
     Dosage: UNK

REACTIONS (6)
  - Oedema mouth [Recovered/Resolved]
  - Swollen tongue [Recovered/Resolved]
  - Lip swelling [Recovered/Resolved]
  - Local swelling [Recovering/Resolving]
  - Drug ineffective [Unknown]
  - Pain in extremity [Unknown]
